FAERS Safety Report 9276362 (Version 1)
Quarter: 2013Q2

REPORT INFORMATION
  Report Type: Spontaneous
  Country: US (occurrence: US)
  Receive Date: 20130507
  Receipt Date: 20130507
  Transmission Date: 20140414
  Serious: Yes (Hospitalization, Other)
  Sender: FDA-Public Use
  Company Number: US-PFIZER INC-2013139411

PATIENT
  Sex: Male
  Weight: 72.56 kg

DRUGS (3)
  1. NITROSTAT [Suspect]
     Indication: CARDIAC DISORDER
     Dosage: UNK, AS NEEDED
     Dates: start: 1989
  2. LOSARTAN [Concomitant]
     Dosage: UNK
  3. XARELTO [Concomitant]
     Dosage: UNK

REACTIONS (3)
  - Cerebral thrombosis [Unknown]
  - Coronary artery thrombosis [Unknown]
  - Cerebrovascular accident [Unknown]
